FAERS Safety Report 5926159-2 (Version None)
Quarter: 2008Q4

REPORT INFORMATION
  Report Type: 
  Country: None (occurrence: None)
  Receive Date: 20081017
  Receipt Date: 20081006
  Transmission Date: 20090506
  Serious: Yes (Hospitalization)
  Sender: FDA-Public Use
  Company Number: 230355K08USA

PATIENT
  Age: 51 Year
  Sex: Female
  Weight: 108 kg

DRUGS (6)
  1. REBIF [Suspect]
     Indication: MULTIPLE SCLEROSIS
     Dosage: 44 MCG, 3 IN 1 WEEKS, SUBCUTANEOUS
     Route: 058
     Dates: start: 20021007
  2. UNSPECIFIED ANTIHYPERTENSIVE (ANTIHYPERTENSIVES) [Concomitant]
  3. UNSPECIFIED ANTIDEPRESSANTS (ANTIDEPRESSANTS) [Concomitant]
  4. REGLAN (METOCLOPRAMIDE /00041901/) [Concomitant]
  5. CLONOPIN [Concomitant]
  6. UNSPECIFIED PAIN PILL (ALL OTHER THERAPEUTIC PRODUCTS) [Concomitant]

REACTIONS (2)
  - ARTHRALGIA [None]
  - TIBIA FRACTURE [None]
